FAERS Safety Report 10606333 (Version 3)
Quarter: 2014Q4

REPORT INFORMATION
  Report Type: Spontaneous
  Country: US (occurrence: US)
  Receive Date: 20141125
  Receipt Date: 20141203
  Transmission Date: 20150529
  Serious: Yes (Hospitalization, Disabling)
  Sender: FDA-Public Use
  Company Number: US-JNJFOC-20141113808

PATIENT
  Sex: Female
  Weight: 86.18 kg

DRUGS (5)
  1. INVEGA SUSTENNA [Suspect]
     Active Substance: PALIPERIDONE PALMITATE
     Indication: BIPOLAR DISORDER
     Route: 030
     Dates: start: 2014
  2. FLEXERIL [Concomitant]
     Active Substance: CYCLOBENZAPRINE HYDROCHLORIDE
     Indication: ARTHRITIS
     Route: 048
  3. ZOLOFT [Concomitant]
     Active Substance: SERTRALINE HYDROCHLORIDE
     Indication: MENOPAUSE
     Route: 048
     Dates: start: 2014
  4. ULTRAM [Concomitant]
     Active Substance: TRAMADOL HYDROCHLORIDE
     Indication: ARTHRITIS
     Route: 048
  5. BLACK COHOSH [Concomitant]
     Active Substance: BLACK COHOSH
     Indication: MENOPAUSE
     Route: 048
     Dates: start: 2014

REACTIONS (6)
  - Fall [Unknown]
  - Thrombosis [Unknown]
  - Hyperhidrosis [Not Recovered/Not Resolved]
  - Cardiac septal defect [Recovered/Resolved]
  - Nerve block [Unknown]
  - Product use issue [Unknown]

NARRATIVE: CASE EVENT DATE: 2014
